FAERS Safety Report 12051063 (Version 3)
Quarter: 2016Q1

REPORT INFORMATION
  Report Type: Not Available
  Country: SE (occurrence: SE)
  Receive Date: 20160209
  Receipt Date: 20160223
  Transmission Date: 20160526
  Serious: Yes (Hospitalization, Other)
  Sender: FDA-Public Use
  Company Number: SE-MUNDIPHARMA DS AND PHARMACOVIGILANCE-GBR-2016-0033813

PATIENT
  Age: 81 Year

DRUGS (2)
  1. DOLCONTIN [Suspect]
     Active Substance: MORPHINE
     Indication: PAIN
     Dosage: 100 MG, BID
     Route: 065
  2. MORPHINE [Concomitant]
     Active Substance: MORPHINE
     Indication: BREAKTHROUGH PAIN

REACTIONS (6)
  - Drug prescribing error [Recovered/Resolved]
  - General physical health deterioration [Recovered/Resolved]
  - Accidental overdose [Recovered/Resolved]
  - Blood creatinine increased [Recovered/Resolved]
  - Prescribed overdose [Recovered/Resolved]
  - Respiratory rate decreased [Recovered/Resolved]

NARRATIVE: CASE EVENT DATE: 20150204
